FAERS Safety Report 22273718 (Version 1)
Quarter: 2023Q2

REPORT INFORMATION
  Report Type: Spontaneous
  Country: US (occurrence: US)
  Receive Date: 20230502
  Receipt Date: 20230502
  Transmission Date: 20230721
  Serious: No
  Sender: FDA-Public Use
  Company Number: US-PFIZER INC-202300170017

PATIENT
  Age: 85 Year
  Sex: Female
  Weight: 89.36 kg

DRUGS (2)
  1. XELJANZ XR [Suspect]
     Active Substance: TOFACITINIB CITRATE
     Dosage: UNK
  2. LORAZEPAM [Concomitant]
     Active Substance: LORAZEPAM
     Dosage: 1 MG

REACTIONS (2)
  - Blood pressure abnormal [Unknown]
  - Headache [Unknown]

NARRATIVE: CASE EVENT DATE: 20230424
